FAERS Safety Report 25740029 (Version 1)
Quarter: 2025Q3

REPORT INFORMATION
  Report Type: Report from Study
  Country: CA (occurrence: CA)
  Receive Date: 20250829
  Receipt Date: 20250829
  Transmission Date: 20251020
  Serious: Yes (Other)
  Sender: CELLTRION
  Company Number: CA-CELLTRION INC.-2025CA027167

PATIENT

DRUGS (2)
  1. INFLIXIMAB-DYYB [Suspect]
     Active Substance: INFLIXIMAB-DYYB
     Indication: Crohn^s disease
     Dosage: 120 MG, EVERY 2 WEEKS
     Route: 058
     Dates: start: 20250110
  2. INFLIXIMAB-DYYB [Suspect]
     Active Substance: INFLIXIMAB-DYYB
     Dosage: 120 MG, EVERY 2 WEEKS
     Route: 058
     Dates: start: 20250321

REACTIONS (9)
  - Rectal haemorrhage [Unknown]
  - Arthralgia [Unknown]
  - Muscular weakness [Unknown]
  - Body temperature increased [Unknown]
  - Harvey-Bradshaw index abnormal [Unknown]
  - Abdominal pain upper [Unknown]
  - Dyspepsia [Unknown]
  - Chest pain [Unknown]
  - Intentional dose omission [Unknown]
